FAERS Safety Report 5532002-6 (Version None)
Quarter: 2007Q4

REPORT INFORMATION
  Report Type: 
  Country: None (occurrence: None)
  Receive Date: 20071203
  Receipt Date: 20071121
  Transmission Date: 20080405
  Serious: Yes (Other)
  Sender: FDA-Public Use
  Company Number: US-MERCK-0711USA04421

PATIENT
  Age: 54 Year
  Sex: Male

DRUGS (4)
  1. HYDRODIURIL [Suspect]
     Indication: HYPERTENSION
     Route: 048
  2. ATENOLOL [Suspect]
     Route: 065
  3. AMLODIPINE BESYLATE [Suspect]
     Route: 065
  4. HYDRALAZINE [Suspect]
     Route: 065

REACTIONS (4)
  - ARTERIOSCLEROSIS [None]
  - DRUG INEFFECTIVE [None]
  - RENAL ARTERY STENOSIS [None]
  - RENAL DISORDER [None]
